FAERS Safety Report 6845532-1 (Version None)
Quarter: 2010Q3

REPORT INFORMATION
  Report Type: 
  Country: None (occurrence: None)
  Receive Date: 20100715
  Receipt Date: 20100708
  Transmission Date: 20110219
  Serious: Yes (Disabling)
  Sender: FDA-Public Use
  Company Number: PHHO2010FR10379

PATIENT
  Sex: Male
  Weight: 66 kg

DRUGS (6)
  1. PLACEBO COMP-PLA+ [Suspect]
     Indication: CARCINOID TUMOUR
     Dosage: CODE NOT BROKEN
     Route: 048
     Dates: start: 20070830
  2. RAD001 [Suspect]
     Indication: CARCINOID TUMOUR
     Dosage: 10 MG/DAY
  3. SANDOSTATIN LAR [Concomitant]
     Indication: CARCINOID TUMOUR
     Dosage: UNK
     Dates: start: 20070830
  4. PRAVASTATIN SODIUM [Concomitant]
  5. INDAPAMIDE [Concomitant]
  6. LYSANXIA [Concomitant]

REACTIONS (5)
  - ARTHRALGIA [None]
  - BONE MARROW OEDEMA [None]
  - COMPLEX REGIONAL PAIN SYNDROME [None]
  - OEDEMA [None]
  - OEDEMA PERIPHERAL [None]
